FAERS Safety Report 20648781 (Version 1)
Quarter: 2022Q1

REPORT INFORMATION
  Report Type: Spontaneous
  Country: US (occurrence: None)
  Receive Date: 20220329
  Receipt Date: 20220329
  Transmission Date: 20220423
  Serious: Yes (Other)
  Sender: FDA-Public Use
  Company Number: 2022A122456

PATIENT
  Sex: Female
  Weight: 69.4 kg

DRUGS (1)
  1. SYMBICORT [Suspect]
     Active Substance: BUDESONIDE\FORMOTEROL FUMARATE DIHYDRATE
     Indication: Dyspnoea
     Dosage: 80/4.5, 120
     Route: 055

REACTIONS (8)
  - Cataract [Unknown]
  - Body height decreased [Unknown]
  - Weight decreased [Unknown]
  - Memory impairment [Unknown]
  - Cough [Unknown]
  - Off label use [Unknown]
  - Intentional device misuse [Unknown]
  - Device malfunction [Unknown]
